FAERS Safety Report 7206507-6 (Version None)
Quarter: 2011Q1

REPORT INFORMATION
  Report Type: 
  Country: None (occurrence: None)
  Receive Date: 20110103
  Receipt Date: 20101221
  Transmission Date: 20110831
  Serious: Yes (Other)
  Sender: FDA-Public Use
  Company Number: US-JNJFOC-20100903318

PATIENT
  Sex: Female

DRUGS (3)
  1. DOXIL [Suspect]
     Indication: OVARIAN CANCER
     Route: 042
  2. DOXIL [Suspect]
     Route: 042
  3. DOXIL [Suspect]
     Route: 042

REACTIONS (10)
  - MUSCULOSKELETAL STIFFNESS [None]
  - WHITE BLOOD CELL COUNT DECREASED [None]
  - BONE PAIN [None]
  - RASH [None]
  - PARAESTHESIA [None]
  - PALMAR-PLANTAR ERYTHRODYSAESTHESIA SYNDROME [None]
  - MUCOSAL INFLAMMATION [None]
  - DYSPNOEA [None]
  - INFUSION RELATED REACTION [None]
  - BLOOD COUNT ABNORMAL [None]
